FAERS Safety Report 6233743-8 (Version None)
Quarter: 2009Q2

REPORT INFORMATION
  Report Type: 
  Country: None (occurrence: None)
  Receive Date: 20090618
  Receipt Date: 20070725
  Transmission Date: 20091009
  Serious: Yes (Other)
  Sender: FDA-Public Use
  Company Number: US-ASTRAZENECA-2007UW02126

PATIENT
  Age: 486 Month
  Sex: Female
  Weight: 106.1 kg

DRUGS (51)
  1. SEROQUEL [Suspect]
     Indication: SCHIZOPHRENIA
     Route: 048
     Dates: start: 19990701
  2. SEROQUEL [Suspect]
     Indication: PARANOIA
     Route: 048
     Dates: start: 19990701
  3. SEROQUEL [Suspect]
     Indication: PSYCHOTIC DISORDER
     Route: 048
     Dates: start: 19990701
  4. SEROQUEL [Suspect]
     Indication: AFFECTIVE DISORDER
     Route: 048
     Dates: start: 19990701
  5. SEROQUEL [Suspect]
     Dosage: 100 MG AT MORNING AND 200 MG AT NIGHT
     Route: 048
     Dates: start: 20001006
  6. SEROQUEL [Suspect]
     Dosage: 100 MG AT MORNING AND 200 MG AT NIGHT
     Route: 048
     Dates: start: 20001006
  7. SEROQUEL [Suspect]
     Dosage: 100 MG AT MORNING AND 200 MG AT NIGHT
     Route: 048
     Dates: start: 20001006
  8. SEROQUEL [Suspect]
     Dosage: 100 MG AT MORNING AND 200 MG AT NIGHT
     Route: 048
     Dates: start: 20001006
  9. SEROQUEL [Suspect]
     Dosage: 50 MG AT MORNING AND 350 MG AT NIGHT
     Route: 048
     Dates: start: 20001107
  10. SEROQUEL [Suspect]
     Dosage: 50 MG AT MORNING AND 350 MG AT NIGHT
     Route: 048
     Dates: start: 20001107
  11. SEROQUEL [Suspect]
     Dosage: 50 MG AT MORNING AND 350 MG AT NIGHT
     Route: 048
     Dates: start: 20001107
  12. SEROQUEL [Suspect]
     Dosage: 50 MG AT MORNING AND 350 MG AT NIGHT
     Route: 048
     Dates: start: 20001107
  13. SEROQUEL [Suspect]
     Dosage: 350 MG AT MORNING AND 350 MG AT NIGHT
     Route: 048
     Dates: start: 20011129
  14. SEROQUEL [Suspect]
     Dosage: 350 MG AT MORNING AND 350 MG AT NIGHT
     Route: 048
     Dates: start: 20011129
  15. SEROQUEL [Suspect]
     Dosage: 350 MG AT MORNING AND 350 MG AT NIGHT
     Route: 048
     Dates: start: 20011129
  16. SEROQUEL [Suspect]
     Dosage: 350 MG AT MORNING AND 350 MG AT NIGHT
     Route: 048
     Dates: start: 20011129
  17. SEROQUEL [Suspect]
     Dosage: 200 MG AT MORNING AND 775 MG AT NIGHT
     Route: 048
     Dates: start: 20061022
  18. SEROQUEL [Suspect]
     Dosage: 200 MG AT MORNING AND 775 MG AT NIGHT
     Route: 048
     Dates: start: 20061022
  19. SEROQUEL [Suspect]
     Dosage: 200 MG AT MORNING AND 775 MG AT NIGHT
     Route: 048
     Dates: start: 20061022
  20. SEROQUEL [Suspect]
     Dosage: 200 MG AT MORNING AND 775 MG AT NIGHT
     Route: 048
     Dates: start: 20061022
  21. SEROQUEL [Suspect]
     Dosage: 150 MG AT MORNING AND 950 MG AT NIGHT
     Route: 048
     Dates: start: 20070414
  22. SEROQUEL [Suspect]
     Dosage: 150 MG AT MORNING AND 950 MG AT NIGHT
     Route: 048
     Dates: start: 20070414
  23. SEROQUEL [Suspect]
     Dosage: 150 MG AT MORNING AND 950 MG AT NIGHT
     Route: 048
     Dates: start: 20070414
  24. SEROQUEL [Suspect]
     Dosage: 150 MG AT MORNING AND 950 MG AT NIGHT
     Route: 048
     Dates: start: 20070414
  25. SEROQUEL [Suspect]
     Dosage: 200 MG AT MORNING AND 400 MG AT NIGHT
     Route: 048
     Dates: start: 20070521
  26. SEROQUEL [Suspect]
     Dosage: 200 MG AT MORNING AND 400 MG AT NIGHT
     Route: 048
     Dates: start: 20070521
  27. SEROQUEL [Suspect]
     Dosage: 200 MG AT MORNING AND 400 MG AT NIGHT
     Route: 048
     Dates: start: 20070521
  28. SEROQUEL [Suspect]
     Dosage: 200 MG AT MORNING AND 400 MG AT NIGHT
     Route: 048
     Dates: start: 20070521
  29. SEROQUEL [Suspect]
     Route: 048
     Dates: start: 20070608
  30. SEROQUEL [Suspect]
     Route: 048
     Dates: start: 20070608
  31. SEROQUEL [Suspect]
     Route: 048
     Dates: start: 20070608
  32. SEROQUEL [Suspect]
     Route: 048
     Dates: start: 20070608
  33. SEROQUEL [Suspect]
     Dosage: 200 MG AT MORNING AND 600 MG AT NIGHT
     Route: 048
     Dates: start: 20070615
  34. SEROQUEL [Suspect]
     Dosage: 200 MG AT MORNING AND 600 MG AT NIGHT
     Route: 048
     Dates: start: 20070615
  35. SEROQUEL [Suspect]
     Dosage: 200 MG AT MORNING AND 600 MG AT NIGHT
     Route: 048
     Dates: start: 20070615
  36. SEROQUEL [Suspect]
     Dosage: 200 MG AT MORNING AND 600 MG AT NIGHT
     Route: 048
     Dates: start: 20070615
  37. SEROQUEL [Suspect]
     Dosage: 300 MG AT MORNING AND 600 MG AT NIGHT
     Route: 048
     Dates: start: 20070702
  38. SEROQUEL [Suspect]
     Dosage: 300 MG AT MORNING AND 600 MG AT NIGHT
     Route: 048
     Dates: start: 20070702
  39. SEROQUEL [Suspect]
     Dosage: 300 MG AT MORNING AND 600 MG AT NIGHT
     Route: 048
     Dates: start: 20070702
  40. SEROQUEL [Suspect]
     Dosage: 300 MG AT MORNING AND 600 MG AT NIGHT
     Route: 048
     Dates: start: 20070702
  41. HALDOL [Concomitant]
     Dates: start: 20000101
  42. RISPERDAL [Concomitant]
  43. PROLIXIN [Concomitant]
     Dosage: 10-20 MG
     Dates: start: 19980101
  44. TOPAMAX [Concomitant]
  45. ZOLOFT [Concomitant]
     Dosage: 100 - 200 MG
     Dates: start: 19980929
  46. GLUCOPHAGE [Concomitant]
     Indication: TYPE 2 DIABETES MELLITUS
     Dates: start: 20010502
  47. FLOVENT [Concomitant]
     Dosage: 4 PUFFS TWO TIMES A DAY
     Dates: start: 20011207
  48. SINGULAIR [Concomitant]
     Indication: ASTHMA
     Dates: start: 20011207
  49. ADVAIR HFA [Concomitant]
     Dosage: 500 / 50
     Dates: start: 20051011
  50. ATROVENT [Concomitant]
     Dates: start: 20011128
  51. METHAZOLAMIDE [Concomitant]
     Indication: BENIGN INTRACRANIAL HYPERTENSION
     Dates: start: 20050721

REACTIONS (17)
  - BENIGN INTRACRANIAL HYPERTENSION [None]
  - BLOOD CHOLESTEROL INCREASED [None]
  - BREAST MASS [None]
  - CYST [None]
  - DERMAL CYST [None]
  - DIABETES MELLITUS [None]
  - DYSLIPIDAEMIA [None]
  - EPISTAXIS [None]
  - HYPOAESTHESIA [None]
  - MUSCULOSKELETAL PAIN [None]
  - OSTEOARTHRITIS [None]
  - PAIN IN EXTREMITY [None]
  - PAPILLOEDEMA [None]
  - RETINOPATHY [None]
  - TACHYCARDIA [None]
  - TYPE 2 DIABETES MELLITUS [None]
  - WEIGHT INCREASED [None]
